FAERS Safety Report 16451537 (Version 1)
Quarter: 2019Q2

REPORT INFORMATION
  Report Type: Spontaneous
  Country: US (occurrence: US)
  Receive Date: 20190619
  Receipt Date: 20190619
  Transmission Date: 20190711
  Serious: No
  Sender: FDA-Public Use
  Company Number: US-ALLERGAN-1839328US

PATIENT
  Sex: Female

DRUGS (1)
  1. NORETHINDRONE ACETATE;ETHINYL ESTRADIOL - BP [Suspect]
     Active Substance: ETHINYL ESTRADIOL\NORETHINDRONE ACETATE
     Indication: HORMONE REPLACEMENT THERAPY
     Dosage: UNK
     Route: 065
     Dates: start: 201801

REACTIONS (5)
  - Product dose omission [Unknown]
  - Irritability [Unknown]
  - Drug ineffective [Unknown]
  - Drug intolerance [Unknown]
  - Insomnia [Unknown]
